FAERS Safety Report 8622225-1 (Version None)
Quarter: 2012Q3

REPORT INFORMATION
  Report Type: 
  Country: None (occurrence: None)
  Receive Date: 20120827
  Receipt Date: 20120822
  Transmission Date: 20120928
  Serious: Yes (Other)
  Sender: FDA-Public Use
  Company Number: US-AMGEN-USASP2012052304

PATIENT
  Age: 60 Year
  Sex: Female
  Weight: 55.329 kg

DRUGS (3)
  1. PROLIA [Suspect]
     Indication: OSTEOPOROSIS POSTMENOPAUSAL
     Dosage: 60 MG, Q6MO
     Route: 058
     Dates: start: 20110421
  2. PROLIA [Suspect]
  3. IBUPROFEN (ADVIL) [Concomitant]

REACTIONS (5)
  - ARTHRALGIA [None]
  - SCIATICA [None]
  - OSTEOPENIA [None]
  - ABASIA [None]
  - ALOPECIA [None]
